FAERS Safety Report 5808481-3 (Version None)
Quarter: 2008Q3

REPORT INFORMATION
  Report Type: 
  Country: None (occurrence: None)
  Receive Date: 20080710
  Receipt Date: 20080710
  Transmission Date: 20090109
  Serious: Yes (Other)
  Sender: FDA-Public Use
  Company Number: None

PATIENT
  Sex: Female
  Weight: 113.3993 kg

DRUGS (5)
  1. AVELOX [Suspect]
     Indication: SINUSITIS
     Dosage: 400MG 1 X 10 DAYS ORAL
     Route: 048
     Dates: start: 20071212, end: 20071222
  2. AVELOX [Suspect]
     Indication: SINUSITIS
     Dosage: 400MG 1 X 10 DAYS ORAL
     Route: 048
     Dates: start: 20080428, end: 20080508
  3. AVELOX [Suspect]
     Indication: SINUSITIS
     Dosage: 400MG 1 X 10 DAYS ORAL
     Route: 048
     Dates: start: 20080602, end: 20080616
  4. CIPROFLOXACIN HCL [Suspect]
     Indication: SINUSITIS
     Dosage: 20 TABLETS 2 X 10 DAYS ORAL
     Route: 048
     Dates: start: 20080416, end: 20080426
  5. VERAMYST [Concomitant]

REACTIONS (1)
  - TENDON RUPTURE [None]
